FAERS Safety Report 6036602-9 (Version None)
Quarter: 2009Q1

REPORT INFORMATION
  Report Type: 
  Country: None (occurrence: None)
  Receive Date: 20090114
  Receipt Date: 20090107
  Transmission Date: 20090719
  Serious: Yes (Hospitalization)
  Sender: FDA-Public Use
  Company Number: US-ASTRAZENECA-2009UW00649

PATIENT
  Age: 68 Year
  Sex: Male
  Weight: 121.6 kg

DRUGS (8)
  1. CRESTOR [Suspect]
     Indication: BLOOD CHOLESTEROL
     Route: 048
  2. CRESTOR [Suspect]
     Route: 048
     Dates: start: 20081201
  3. ZETIA [Suspect]
  4. XANAX [Concomitant]
  5. BLOOD PRESSURE MEDICATION [Concomitant]
  6. FLOMAX [Concomitant]
  7. ARTHRITIS [Concomitant]
  8. ZOLOFT [Concomitant]

REACTIONS (2)
  - MUSCLE DISORDER [None]
  - TREMOR [None]
